FAERS Safety Report 18388589 (Version 1)
Quarter: 2020Q4

REPORT INFORMATION
  Report Type: Spontaneous
  Country: NL (occurrence: ES)
  Receive Date: 20201015
  Receipt Date: 20201015
  Transmission Date: 20210114
  Serious: Yes (Hospitalization, Other)
  Sender: FDA-Public Use
  Company Number: ES-FRESENIUS KABI-FK202010730

PATIENT
  Age: 64 Year

DRUGS (14)
  1. DOXORUBICIN [Suspect]
     Active Substance: DOXORUBICIN
     Indication: B-CELL LYMPHOMA
     Route: 065
     Dates: start: 2002
  2. GEMCITABINE. [Suspect]
     Active Substance: GEMCITABINE
     Indication: DIFFUSE LARGE B-CELL LYMPHOMA
     Dosage: 3 CYCLES
     Route: 065
     Dates: start: 20200701
  3. RITUXIMAB. [Suspect]
     Active Substance: RITUXIMAB
     Dosage: 8 DOSES: ONE EVERY 2-3 MONTHS
     Route: 065
     Dates: start: 201104, end: 201212
  4. RITUXIMAB. [Suspect]
     Active Substance: RITUXIMAB
     Dosage: 4 DOSES EVERY 6 MONTHS
     Route: 065
     Dates: start: 200308, end: 200511
  5. OXALIPLATIN (MANUFACTURER UNKNOWN) [Suspect]
     Active Substance: OXALIPLATIN
     Indication: DIFFUSE LARGE B-CELL LYMPHOMA
     Dosage: 3 CYCLES
     Route: 065
     Dates: start: 20200701
  6. RITUXIMAB. [Suspect]
     Active Substance: RITUXIMAB
     Indication: B-CELL LYMPHOMA
     Route: 065
     Dates: start: 201910
  7. BENDAMUSTINE HYDROCHLORIDE (MANUFACTURER UNKOWN) [Suspect]
     Active Substance: BENDAMUSTINE HYDROCHLORIDE
     Indication: B-CELL LYMPHOMA
     Route: 065
     Dates: start: 201910
  8. CYCLOPHOSPHAMIDE. [Suspect]
     Active Substance: CYCLOPHOSPHAMIDE
     Indication: B-CELL LYMPHOMA
     Route: 065
     Dates: start: 2002
  9. RITUXIMAB. [Suspect]
     Active Substance: RITUXIMAB
     Dosage: 4 DOSES X 6 CYCLES
     Route: 065
     Dates: start: 2002
  10. RITUXIMAB. [Suspect]
     Active Substance: RITUXIMAB
     Indication: DIFFUSE LARGE B-CELL LYMPHOMA
     Dosage: 4 DOSES EVERY 6 MONTHS
     Route: 065
     Dates: start: 2007, end: 2011
  11. RITUXIMAB. [Suspect]
     Active Substance: RITUXIMAB
     Dosage: 3 CYCLES
     Route: 065
     Dates: start: 202007
  12. VINCRISTINE [Suspect]
     Active Substance: VINCRISTINE
     Indication: B-CELL LYMPHOMA
     Route: 065
     Dates: start: 2002
  13. PREDNISONE. [Suspect]
     Active Substance: PREDNISONE
     Indication: B-CELL LYMPHOMA
     Route: 065
     Dates: start: 2002
  14. RITUXIMAB. [Suspect]
     Active Substance: RITUXIMAB
     Dosage: 4 DOSES
     Route: 065
     Dates: start: 201605, end: 201805

REACTIONS (9)
  - Off label use [Unknown]
  - Condition aggravated [Unknown]
  - Chronic sinusitis [Unknown]
  - Campylobacter gastroenteritis [Unknown]
  - Bronchiectasis [Unknown]
  - Pneumonia [Unknown]
  - Ill-defined disorder [Unknown]
  - Weight decreased [Unknown]
  - Intentional product use issue [Unknown]

NARRATIVE: CASE EVENT DATE: 201908
